FAERS Safety Report 4767186-0 (Version None)
Quarter: 2005Q3

REPORT INFORMATION
  Report Type: 
  Country: None (occurrence: None)
  Receive Date: 20050909
  Receipt Date: 20050902
  Transmission Date: 20060218
  Serious: Yes (Death)
  Sender: FDA-Public Use
  Company Number: 163-20785-05020475

PATIENT
  Age: 73 Year
  Sex: Male

DRUGS (1)
  1. THALOMID [Suspect]
     Indication: MULTIPLE MYELOMA
     Dosage: 150 MG, DAILY, ORAL
     Route: 048
     Dates: start: 20011214, end: 20040101

REACTIONS (5)
  - HYPERTENSION [None]
  - PARKINSON'S DISEASE [None]
  - PNEUMONIA [None]
  - RENAL FAILURE CHRONIC [None]
  - UROSEPSIS [None]
